FAERS Safety Report 15894471 (Version 1)
Quarter: 2019Q1

REPORT INFORMATION
  Report Type: Spontaneous
  Country: CN (occurrence: CN)
  Receive Date: 20190131
  Receipt Date: 20190131
  Transmission Date: 20190417
  Serious: Yes (Other)
  Sender: FDA-Public Use
  Company Number: CN-LUPIN PHARMACEUTICALS INC.-2019-00415

PATIENT
  Age: 76 Year
  Sex: Female

DRUGS (1)
  1. DECITABINE INJECTION [Suspect]
     Active Substance: DECITABINE
     Indication: ACUTE MYELOID LEUKAEMIA
     Dosage: 20 MG/M2, UNK
     Route: 041

REACTIONS (2)
  - Bone marrow failure [Unknown]
  - Hepatic function abnormal [Unknown]
